FAERS Safety Report 14243769 (Version 1)
Quarter: 2017Q4

REPORT INFORMATION
  Report Type: Spontaneous
  Country: US (occurrence: US)
  Receive Date: 20171201
  Receipt Date: 20171201
  Transmission Date: 20180321
  Serious: Yes (Other)
  Sender: FDA-Public Use
  Company Number: US-PFIZER INC-2017514332

PATIENT
  Sex: Female

DRUGS (2)
  1. ALPRAZOLAM. [Suspect]
     Active Substance: ALPRAZOLAM
     Indication: PANIC ATTACK
     Dosage: 2MG PILL BY MOUTH TWICE A DAY
     Route: 048
  2. ALPRAZOLAM. [Suspect]
     Active Substance: ALPRAZOLAM
     Indication: AFFECTIVE DISORDER

REACTIONS (7)
  - Limb crushing injury [Not Recovered/Not Resolved]
  - Wrist fracture [Recovering/Resolving]
  - Drug ineffective [Unknown]
  - Wrist deformity [Unknown]
  - Fall [Unknown]
  - Seizure [Unknown]
  - Arthralgia [Unknown]

NARRATIVE: CASE EVENT DATE: 201702
